FAERS Safety Report 8495250-1 (Version None)
Quarter: 2012Q3

REPORT INFORMATION
  Report Type: 
  Country: None (occurrence: None)
  Receive Date: 20120709
  Receipt Date: 20120705
  Transmission Date: 20120928
  Serious: Yes (Death)
  Sender: FDA-Public Use
  Company Number: IT-BAYER-2012-067136

PATIENT
  Age: 72 Year
  Sex: Female

DRUGS (1)
  1. ASPIRIN [Suspect]
     Dosage: 100 MG, QD
     Route: 048
     Dates: start: 20090101, end: 20120626

REACTIONS (1)
  - CEREBRAL HAEMORRHAGE [None]
